FAERS Safety Report 5951526-0 (Version None)
Quarter: 2008Q4

REPORT INFORMATION
  Report Type: 
  Country: None (occurrence: None)
  Receive Date: 20081113
  Receipt Date: 20081103
  Transmission Date: 20090506
  Serious: Yes (Death, Hospitalization, Other)
  Sender: FDA-Public Use
  Company Number: GB-AVENTIS-200820590GDDC

PATIENT
  Age: 66 Year
  Sex: Male

DRUGS (5)
  1. GLYBURIDE [Suspect]
  2. METFORMIN HCL [Suspect]
  3. RITUXIMAB [Suspect]
     Route: 042
     Dates: start: 20080418, end: 20080610
  4. ISOSORBIDE [Suspect]
  5. ASCRIPTIN                          /00058201/ [Suspect]

REACTIONS (3)
  - GASTROINTESTINAL HAEMORRHAGE [None]
  - LYMPHOMA [None]
  - RENAL FAILURE [None]
